FAERS Safety Report 4982579-4 (Version None)
Quarter: 2006Q2

REPORT INFORMATION
  Report Type: 
  Country: None (occurrence: None)
  Receive Date: 20060421
  Receipt Date: 20060405
  Transmission Date: 20061013
  Serious: Yes (Other)
  Sender: FDA-Public Use
  Company Number: TRP_0745_2006

PATIENT
  Age: 51 Year
  Sex: Male
  Weight: 97.0698 kg

DRUGS (7)
  1. RIBASPHERE/ RIBAVIRIN/ THREE RIVERS PHARMA/ 200 MG [Suspect]
     Indication: HEPATITIS C
     Dosage: DF,  PO
     Route: 048
     Dates: start: 20050429, end: 20051007
  2. PEG-INTRON [Suspect]
     Indication: HEPATITIS C
     Dosage: DF,  SC
     Route: 058
     Dates: start: 20050429, end: 20051007
  3. DICYCLOMINE HYDROCHLORIDE [Concomitant]
  4. HYDROCHLOROTHIAZIDE [Concomitant]
  5. WELLBUTRIN [Concomitant]
  6. ZIAC [Concomitant]
  7. ZYPREXA [Concomitant]

REACTIONS (5)
  - ABDOMINAL PAIN UPPER [None]
  - ALOPECIA [None]
  - BLADDER DISCOMFORT [None]
  - DEPRESSION [None]
  - DYSURIA [None]
